FAERS Safety Report 8091466-7 (Version None)
Quarter: 2012Q1

REPORT INFORMATION
  Report Type: 
  Country: None (occurrence: None)
  Receive Date: 20120129
  Receipt Date: 20111101
  Transmission Date: 20120608
  Serious: No
  Sender: FDA-Public Use
  Company Number: US-ABBOTT-11P-163-0871430-00

PATIENT
  Sex: Male

DRUGS (1)
  1. HUMIRA [Suspect]
     Indication: PSORIASIS
     Route: 050
     Dates: start: 20111101

REACTIONS (4)
  - PARAESTHESIA ORAL [None]
  - HYPOAESTHESIA ORAL [None]
  - PRURITUS [None]
  - EYELIDS PRURITUS [None]
